FAERS Safety Report 8969964 (Version 1)
Quarter: 2012Q4

REPORT INFORMATION
  Report Type: 
  Country: US (occurrence: US)
  Receive Date: 20121218
  Receipt Date: 20121218
  Transmission Date: 20130627
  Serious: No
  Sender: FDA-Public Use
  Company Number: US-BAYER-2012-132423

PATIENT
  Age: 47 Year

DRUGS (1)
  1. MAGNEVIST [Suspect]
     Indication: MRI

REACTIONS (2)
  - Tongue pruritus [None]
  - Urticaria [None]
